FAERS Safety Report 17037973 (Version 2)
Quarter: 2019Q4

REPORT INFORMATION
  Report Type: Report from Study
  Country: US (occurrence: US)
  Receive Date: 20191115
  Receipt Date: 20191127
  Transmission Date: 20200122
  Serious: No
  Sender: FDA-Public Use
  Company Number: NVSC2019US037362

PATIENT
  Age: 52 Year
  Sex: Female

DRUGS (1)
  1. ENTRESTO [Suspect]
     Active Substance: SACUBITRIL\VALSARTAN
     Indication: CARDIAC FAILURE CONGESTIVE
     Dosage: 50 MG(24MG SACUBITRIL/ 26MG VALSARTAN), BID
     Route: 048
     Dates: start: 20191105

REACTIONS (2)
  - Pruritus [Unknown]
  - Fatigue [Not Recovered/Not Resolved]
